FAERS Safety Report 8092833 (Version 6)
Quarter: 2012Q4

REPORT INFORMATION
  Report Type: 
  Country: CA (occurrence: CA)
  Receive Date: 20110816
  Receipt Date: 20120917
  Transmission Date: 20130627
  Serious: Yes (Other)
  Sender: FDA-Public Use
  Company Number: PHHY2010CA58533

PATIENT
  Age: 62 Year
  Sex: Female

DRUGS (1)
  1. ACLASTA [Suspect]
     Indication: OSTEOPOROSIS
     Dosage: 5 mg per 100ml
     Route: 042
     Dates: start: 20100901

REACTIONS (8)
  - Fracture [Unknown]
  - Arthralgia [Recovered/Resolved]
  - Joint swelling [Recovered/Resolved]
  - Oedema peripheral [Not Recovered/Not Resolved]
  - Pain in extremity [Not Recovered/Not Resolved]
  - Influenza [Unknown]
  - Increased upper airway secretion [Unknown]
  - Viral infection [Unknown]
